FAERS Safety Report 7910303-1 (Version None)
Quarter: 2011Q4

REPORT INFORMATION
  Report Type: 
  Country: None (occurrence: None)
  Receive Date: 20111111
  Receipt Date: 20111102
  Transmission Date: 20120403
  Serious: Yes (Hospitalization)
  Sender: FDA-Public Use
  Company Number: US-ROCHE-1011117

PATIENT
  Sex: Male
  Weight: 70.37 kg

DRUGS (1)
  1. XELODA [Suspect]
     Indication: BILE DUCT CANCER
     Route: 048
     Dates: start: 20110921, end: 20111018

REACTIONS (1)
  - DUODENAL ULCER [None]
